FAERS Safety Report 19074066 (Version 1)
Quarter: 2021Q1

REPORT INFORMATION
  Report Type: Spontaneous
  Country: US (occurrence: US)
  Receive Date: 20210330
  Receipt Date: 20210330
  Transmission Date: 20210420
  Serious: No
  Sender: FDA-Public Use
  Company Number: US-BRISTOL-MYERS SQUIBB COMPANY-BMS-2021-031223

PATIENT
  Age: 64 Year
  Sex: Female

DRUGS (1)
  1. IPILIMUMAB [Suspect]
     Active Substance: IPILIMUMAB
     Indication: THYROID CANCER
     Dosage: UNK
     Route: 065

REACTIONS (2)
  - Intentional product use issue [Unknown]
  - Anaemia [Unknown]
